FAERS Safety Report 24139410 (Version 1)
Quarter: 2024Q3

REPORT INFORMATION
  Report Type: Spontaneous
  Country: US (occurrence: US)
  Receive Date: 20240726
  Receipt Date: 20240726
  Transmission Date: 20241017
  Serious: No
  Sender: SANOFI AVENTIS
  Company Number: US-SA-SAC20240723000709

PATIENT
  Age: 8 Year
  Sex: Female

DRUGS (2)
  1. DUPIXENT [Suspect]
     Active Substance: DUPILUMAB
     Indication: Eczema
     Dosage: INJECT 2 PENS UNDER THE SKIN ON DAY 1 (ESTIMATED 08/2023)
     Route: 058
  2. DUPIXENT [Suspect]
     Active Substance: DUPILUMAB
     Dosage: THEN 1 PEN UNDER THE SKIN EVERY 4 WEEKS THEREAFTER
     Route: 058

REACTIONS (1)
  - Eczema [Recovered/Resolved]
